FAERS Safety Report 6616007-X (Version None)
Quarter: 2010Q1

REPORT INFORMATION
  Report Type: 
  Country: None (occurrence: None)
  Receive Date: 20100305
  Receipt Date: 20100224
  Transmission Date: 20100710
  Serious: Yes (Other)
  Sender: FDA-Public Use
  Company Number: B0624809A

PATIENT
  Sex: Female

DRUGS (8)
  1. LAMICTAL [Suspect]
     Indication: BIPOLAR DISORDER
     Dosage: 75MG TWICE PER DAY
     Route: 048
     Dates: start: 20090626
  2. LAMICTAL [Suspect]
     Dosage: 845MG PER DAY
     Route: 048
  3. RIVOTRIL [Concomitant]
     Indication: BIPOLAR DISORDER
     Dosage: 2MG PER DAY
     Route: 048
  4. DESYREL [Concomitant]
     Indication: BIPOLAR DISORDER
     Dosage: 100MG PER DAY
     Route: 048
  5. SG [Concomitant]
     Indication: BIPOLAR DISORDER
     Dosage: 3G PER DAY
     Route: 048
  6. HALCION [Concomitant]
     Indication: BIPOLAR DISORDER
     Dosage: .25MG PER DAY
     Route: 048
  7. DEPAS [Concomitant]
     Indication: BIPOLAR DISORDER
     Dosage: 3MG PER DAY
     Route: 048
  8. SEROQUEL [Concomitant]
     Indication: BIPOLAR DISORDER
     Route: 048

REACTIONS (2)
  - OVERDOSE [None]
  - SUICIDE ATTEMPT [None]
